FAERS Safety Report 6237450-7 (Version None)
Quarter: 2009Q2

REPORT INFORMATION
  Report Type: 
  Country: None (occurrence: None)
  Receive Date: 20090619
  Receipt Date: 20090609
  Transmission Date: 20091009
  Serious: Yes (Disabling)
  Sender: FDA-Public Use
  Company Number: IT-AMGEN-US351040

PATIENT
  Sex: Female

DRUGS (1)
  1. ENBREL [Suspect]
     Indication: PSORIATIC ARTHROPATHY
     Dosage: PRE-FILLED (50 MG WEEKLY)
     Route: 058
     Dates: start: 20070101, end: 20090301

REACTIONS (2)
  - DEMYELINATION [None]
  - ENCEPHALOPATHY [None]
